APPROVED DRUG PRODUCT: MIDAZOLAM HYDROCHLORIDE PRESERVATIVE FREE
Active Ingredient: MIDAZOLAM HYDROCHLORIDE
Strength: EQ 5MG BASE/ML
Dosage Form/Route: INJECTABLE;INJECTION
Application: A203460 | Product #002 | TE Code: AP
Applicant: FRESENIUS KABI USA LLC
Approved: Aug 22, 2014 | RLD: No | RS: No | Type: RX